FAERS Safety Report 6139518-2 (Version None)
Quarter: 2009Q2

REPORT INFORMATION
  Report Type: 
  Country: None (occurrence: None)
  Receive Date: 20090401
  Receipt Date: 20090318
  Transmission Date: 20091009
  Serious: Yes (Hospitalization, Disabling, Other)
  Sender: FDA-Public Use
  Company Number: DE-CELGENEUS-062-50794-09020098

PATIENT
  Sex: Male
  Weight: 130 kg

DRUGS (2)
  1. VIDAZA [Suspect]
     Indication: REFRACTORY ANAEMIA
     Route: 058
     Dates: start: 20090126, end: 20090130
  2. VIDAZA [Suspect]
     Route: 058
     Dates: start: 20090223, end: 20090301

REACTIONS (1)
  - HYPERCALCAEMIA [None]
